FAERS Safety Report 9351219 (Version 1)
Quarter: 2013Q2

REPORT INFORMATION
  Report Type: Spontaneous
  Country: ZA (occurrence: ZA)
  Receive Date: 20130617
  Receipt Date: 20130617
  Transmission Date: 20140414
  Serious: Yes (Other)
  Sender: FDA-Public Use
  Company Number: ZA-PFIZER INC-2013176212

PATIENT
  Age: 65 Year
  Sex: Female

DRUGS (2)
  1. ASPAVOR [Suspect]
     Indication: BLOOD CHOLESTEROL INCREASED
     Dosage: UNK, ONCE DAILY
     Route: 048
     Dates: start: 201302, end: 20130606
  2. ALTOXIN [Concomitant]
     Indication: THYROID DISORDER
     Dosage: UNK, ONCE DAILY
     Route: 048

REACTIONS (5)
  - Myalgia [Not Recovered/Not Resolved]
  - Pain [Not Recovered/Not Resolved]
  - Back pain [Not Recovered/Not Resolved]
  - Bedridden [Not Recovered/Not Resolved]
  - Activities of daily living impaired [Not Recovered/Not Resolved]
